FAERS Safety Report 8159994-3 (Version None)
Quarter: 2012Q1

REPORT INFORMATION
  Report Type: 
  Country: None (occurrence: None)
  Receive Date: 20120223
  Receipt Date: 20120220
  Transmission Date: 20120608
  Serious: Yes (Other)
  Sender: FDA-Public Use
  Company Number: US-GLAXOSMITHKLINE-A0966550A

PATIENT
  Age: 74 Year
  Sex: Male

DRUGS (9)
  1. MIRAPEX [Concomitant]
  2. AVODART [Suspect]
     Indication: BENIGN PROSTATIC HYPERPLASIA
     Dosage: 1CAP PER DAY
     Route: 048
     Dates: start: 20111205
  3. CETIRIZINE [Concomitant]
  4. MELATONIN [Concomitant]
  5. ZOCOR [Concomitant]
  6. PLAVIX [Concomitant]
  7. FLAX SEED OIL [Concomitant]
  8. MULTI-VITAMIN [Concomitant]
  9. TYLENOL (CAPLET) [Concomitant]

REACTIONS (2)
  - FAECES DISCOLOURED [None]
  - HAEMATOCHEZIA [None]
